FAERS Safety Report 9237006 (Version 2)
Quarter: 2013Q2

REPORT INFORMATION
  Report Type: Spontaneous
  Country: US (occurrence: US)
  Receive Date: 20130417
  Receipt Date: 20130507
  Transmission Date: 20140414
  Serious: No
  Sender: FDA-Public Use
  Company Number: US-PFIZER INC-2013119915

PATIENT
  Age: 46 Year
  Sex: Female
  Weight: 92.52 kg

DRUGS (3)
  1. CHANTIX [Suspect]
     Indication: SMOKING CESSATION THERAPY
     Dosage: 0.5 MG, 1X/DAY
     Route: 048
     Dates: start: 201304, end: 201304
  2. DETROL LA [Concomitant]
     Dosage: 4 MG, 1X/DAY
  3. PROTONIX [Concomitant]
     Dosage: 40 MG, UNK

REACTIONS (4)
  - Feeling abnormal [Recovered/Resolved]
  - Feeling jittery [Recovered/Resolved]
  - Dysgeusia [Recovered/Resolved]
  - Drug intolerance [Recovered/Resolved]
